FAERS Safety Report 25423285 (Version 1)
Quarter: 2025Q2

REPORT INFORMATION
  Report Type: Spontaneous
  Country: US (occurrence: None)
  Receive Date: 20250611
  Receipt Date: 20250611
  Transmission Date: 20250717
  Serious: Yes (Hospitalization)
  Sender: FDA-CTU
  Company Number: None

PATIENT
  Sex: Female

DRUGS (10)
  1. REPATHA [Suspect]
     Active Substance: EVOLOCUMAB
     Indication: Product used for unknown indication
     Dosage: INJECT 140 MG UNDER THE SKIN (SUBCUTANEOUS INJECTION) EVERY 14 DAYS?
     Route: 058
     Dates: start: 20240423
  2. BRIUNTA TAB [Concomitant]
  3. ENTRESTO TAB [Concomitant]
  4. FUROSEMIDE TAB [Concomitant]
  5. HUMALOG INJ [Concomitant]
  6. LEVOTHYROXIN TAB [Concomitant]
  7. METOPROL SUC TAB [Concomitant]
  8. ROSUVASTATIN [Concomitant]
     Active Substance: ROSUVASTATIN
  9. SERTRALINE HYDROCHLORIDE [Concomitant]
     Active Substance: SERTRALINE HYDROCHLORIDE
  10. SKYRIZI [Concomitant]
     Active Substance: RISANKIZUMAB-RZAA

REACTIONS (1)
  - Therapy interrupted [None]
